FAERS Safety Report 4471516-7 (Version None)
Quarter: 2004Q4

REPORT INFORMATION
  Report Type: 
  Country: None (occurrence: None)
  Receive Date: 20041007
  Receipt Date: 20041007
  Transmission Date: 20050328
  Serious: Yes (Hospitalization)
  Sender: FDA-Public Use
  Company Number: None

PATIENT
  Age: 38 Year
  Sex: Male

DRUGS (4)
  1. DIDANOSINE [Suspect]
     Indication: HIV INFECTION
     Dosage: 250 MG PO QD
     Route: 048
     Dates: start: 20031015, end: 20040811
  2. TENOFOVIR [Suspect]
     Dosage: 300 MG PO QD
     Route: 048
     Dates: start: 20030409, end: 20040811
  3. RITONAVIR [Suspect]
     Dosage: 100 MG PO QD
     Route: 048
     Dates: start: 20031015, end: 20040811
  4. ATAZANAVIR [Suspect]
     Dosage: 300 MG PO QD
     Route: 048
     Dates: start: 20031015, end: 20040811

REACTIONS (3)
  - DIABETES MELLITUS [None]
  - NAUSEA [None]
  - VOMITING [None]
